FAERS Safety Report 4713103-9 (Version None)
Quarter: 2005Q3

REPORT INFORMATION
  Report Type: 
  Country: None (occurrence: None)
  Receive Date: 20050701
  Receipt Date: 20040816
  Transmission Date: 20060218
  Serious: Yes (Other)
  Sender: FDA-Public Use
  Company Number: 2004042049

PATIENT
  Age: 48 Year
  Sex: Female
  Weight: 61.2356 kg

DRUGS (4)
  1. ZOLOFT [Suspect]
     Indication: DEPRESSION
     Dosage: 50 MG (50 MG, 1 IN 1 D), ORAL
     Route: 048
     Dates: start: 20040527, end: 20040528
  2. ZOLOFT [Suspect]
     Indication: PREMENSTRUAL SYNDROME
     Dosage: 50 MG (50 MG, 1 IN 1 D), ORAL
     Route: 048
     Dates: start: 20040527, end: 20040528
  3. THYROID TAB [Concomitant]
  4. ALPRAZOLAM [Concomitant]

REACTIONS (17)
  - CONSTIPATION [None]
  - DIARRHOEA [None]
  - ELECTROLYTE IMBALANCE [None]
  - EPISTAXIS [None]
  - FACE INJURY [None]
  - FACIAL BONES FRACTURE [None]
  - FEELING ABNORMAL [None]
  - GASTROENTERITIS VIRAL [None]
  - HYPERHIDROSIS [None]
  - HYPOAESTHESIA [None]
  - LACERATION [None]
  - LOSS OF CONSCIOUSNESS [None]
  - MALAISE [None]
  - NAUSEA [None]
  - POST GASTRIC SURGERY SYNDROME [None]
  - SYNCOPE [None]
  - TOOTH INJURY [None]
